FAERS Safety Report 16482252 (Version 1)
Quarter: 2019Q2

REPORT INFORMATION
  Report Type: Spontaneous
  Country: SE (occurrence: SE)
  Receive Date: 20190627
  Receipt Date: 20190627
  Transmission Date: 20190711
  Serious: Yes (Hospitalization)
  Sender: FDA-Public Use
  Company Number: SE-TEVA-2019-SE-1069815

PATIENT
  Age: 20 Year
  Sex: Female

DRUGS (2)
  1. LERGIGAN (PROMETHAZINE HYDROCHLORIDE) [Suspect]
     Active Substance: PROMETHAZINE HYDROCHLORIDE
     Dosage: 625-750 MG
     Route: 048
     Dates: start: 20190221, end: 20190221
  2. OLANZAPINE. [Suspect]
     Active Substance: OLANZAPINE
     Dates: start: 20190221, end: 20190221

REACTIONS (3)
  - Intentional overdose [Unknown]
  - Muscle twitching [Unknown]
  - Intentional self-injury [Unknown]

NARRATIVE: CASE EVENT DATE: 20190221
